FAERS Safety Report 12754384 (Version 1)
Quarter: 2016Q3

REPORT INFORMATION
  Report Type: Spontaneous
  Country: JP (occurrence: JP)
  Receive Date: 20160916
  Receipt Date: 20160916
  Transmission Date: 20161109
  Serious: Yes (Other)
  Sender: FDA-Public Use
  Company Number: PHJP2016JP026041

PATIENT
  Age: 69 Year
  Sex: Male

DRUGS (3)
  1. NEORAL [Suspect]
     Active Substance: CYCLOSPORINE
     Indication: STILL^S DISEASE ADULT ONSET
     Dosage: 50 MG, QD
     Route: 065
  2. NEORAL [Suspect]
     Active Substance: CYCLOSPORINE
     Dosage: 200-250 MG, UNK
     Route: 065
  3. NEORAL [Suspect]
     Active Substance: CYCLOSPORINE
     Dosage: 250 MG, UNK
     Route: 065

REACTIONS (7)
  - C-reactive protein increased [Recovering/Resolving]
  - Serum ferritin increased [Recovered/Resolved]
  - Arthropathy [Recovered/Resolved]
  - Alanine aminotransferase increased [Unknown]
  - Still^s disease adult onset [Unknown]
  - Pyrexia [Recovered/Resolved]
  - Product use issue [Unknown]
